FAERS Safety Report 20306641 (Version 1)
Quarter: 2022Q1

REPORT INFORMATION
  Report Type: Spontaneous
  Country: US (occurrence: US)
  Receive Date: 20220106
  Receipt Date: 20220106
  Transmission Date: 20220423
  Serious: Yes (Hospitalization)
  Sender: FDA-Public Use
  Company Number: US-009507513-2112USA005233

PATIENT
  Age: 50 Year
  Sex: Male

DRUGS (7)
  1. PREVYMIS [Suspect]
     Active Substance: LETERMOVIR
     Indication: Acute myeloid leukaemia (in remission)
     Dosage: 240 MILLIGRAM, QD
     Route: 048
     Dates: start: 20210219
  2. PREVYMIS [Suspect]
     Active Substance: LETERMOVIR
     Indication: Acute myeloid leukaemia
  3. URSODIOL [Concomitant]
     Active Substance: URSODIOL
     Dosage: UNK
  4. CYCLOSERINE [Concomitant]
     Active Substance: CYCLOSERINE
     Dosage: UNK
  5. FLUCONAZOLE [Concomitant]
     Active Substance: FLUCONAZOLE
     Dosage: UNK
  6. PREDNISONE [Concomitant]
     Active Substance: PREDNISONE
     Dosage: UNK
  7. ACYCLOVIR [Concomitant]
     Active Substance: ACYCLOVIR
     Dosage: UNK

REACTIONS (1)
  - Adverse event [Unknown]

NARRATIVE: CASE EVENT DATE: 20210301
